FAERS Safety Report 12483018 (Version 2)
Quarter: 2016Q3

REPORT INFORMATION
  Report Type: Report from Study
  Country: CA (occurrence: CA)
  Receive Date: 20160620
  Receipt Date: 20160705
  Transmission Date: 20161109
  Serious: Yes (Other)
  Sender: FDA-Public Use
  Company Number: CA-GILEAD-2016-0218313

PATIENT
  Age: 55 Year
  Sex: Male

DRUGS (2)
  1. ENSURE [Concomitant]
     Active Substance: AMINO ACIDS\DEXTROSE\ELECTROLYTES NOS\SOYBEAN OIL\VITAMINS
     Indication: DECREASED APPETITE
     Dosage: UNK
     Route: 065
  2. LEDIPASVIR/SOFOSBUVIR [Suspect]
     Active Substance: LEDIPASVIR\SOFOSBUVIR
     Indication: CHRONIC HEPATITIS C
     Dosage: 1 DF, UNK
     Route: 048
     Dates: start: 20160207

REACTIONS (20)
  - Decreased interest [Unknown]
  - Disturbance in social behaviour [Recovering/Resolving]
  - Weight fluctuation [Unknown]
  - Hepatomegaly [Unknown]
  - Flank pain [Unknown]
  - Pain [Unknown]
  - Adjustment disorder with depressed mood [Recovered/Resolved]
  - Gastric disorder [Unknown]
  - Frustration tolerance decreased [Unknown]
  - Energy increased [Unknown]
  - Spinal fracture [Unknown]
  - Decreased appetite [Recovered/Resolved]
  - Therapeutic response unexpected [Recovered/Resolved]
  - Hepatic pain [Unknown]
  - Renal pain [Unknown]
  - Malaise [Recovered/Resolved]
  - Oedematous kidney [Unknown]
  - Insomnia [Unknown]
  - Mental status changes [Recovering/Resolving]
  - Back pain [Unknown]

NARRATIVE: CASE EVENT DATE: 201602
